FAERS Safety Report 11279050 (Version 1)
Quarter: 2015Q3

REPORT INFORMATION
  Report Type: Spontaneous
  Country: FR (occurrence: None)
  Receive Date: 20150715
  Receipt Date: 20150715
  Transmission Date: 20151125
  Serious: Yes (Hospitalization)
  Sender: FDA-Public Use
  Company Number: CO-PL-FR-2015-126

PATIENT
  Age: 43 Year
  Sex: Female

DRUGS (5)
  1. PLAQUENIL [Suspect]
     Active Substance: HYDROXYCHLOROQUINE SULFATE
     Indication: SYSTEMIC LUPUS ERYTHEMATOSUS
     Route: 048
     Dates: start: 2014, end: 20150518
  2. DOLIPRANE [Concomitant]
     Active Substance: ACETAMINOPHEN
  3. MAALOX (MAGNESIUM HYDROXIDE, ALUMINIUM HYDROXIDE) [Concomitant]
  4. PRETERAX [Suspect]
     Active Substance: INDAPAMIDE\PERINDOPRIL
     Indication: PRODUCT USED FOR UNKNOWN INDICATION
     Route: 048
     Dates: start: 20150515, end: 20150518
  5. SMECTA (DIOSMECTITE) [Concomitant]

REACTIONS (10)
  - Peripheral swelling [None]
  - Malaise [None]
  - Limb discomfort [None]
  - Oedema [None]
  - Abdominal discomfort [None]
  - Abdominal distension [None]
  - Dysgeusia [None]
  - Oropharyngeal pain [None]
  - Poor quality sleep [None]
  - Blood pressure increased [None]

NARRATIVE: CASE EVENT DATE: 2014
